FAERS Safety Report 13688366 (Version 1)
Quarter: 2017Q2

REPORT INFORMATION
  Report Type: Report from Study
  Country: None (occurrence: US)
  Receive Date: 20170626
  Receipt Date: 20170626
  Transmission Date: 20170830
  Serious: Yes (Hospitalization, Other)
  Sender: FDA-Public Use
  Company Number: US-ABBVIE-17K-163-2016122-00

PATIENT
  Sex: Female

DRUGS (1)
  1. HUMIRA [Suspect]
     Active Substance: ADALIMUMAB
     Indication: COLITIS ULCERATIVE
     Route: 058

REACTIONS (6)
  - Hospitalisation [Unknown]
  - Weight decreased [Unknown]
  - Colitis ulcerative [Unknown]
  - Thrombosis [Unknown]
  - Exposure to communicable disease [Unknown]
  - Hypophagia [Unknown]

NARRATIVE: CASE EVENT DATE: 2017
